FAERS Safety Report 6893089-1 (Version None)
Quarter: 2010Q3

REPORT INFORMATION
  Report Type: 
  Country: None (occurrence: None)
  Receive Date: 20100731
  Receipt Date: 20090506
  Transmission Date: 20110219
  Serious: Yes (Death, Other)
  Sender: FDA-Public Use
  Company Number: US-PFIZER INC-2008059177

PATIENT
  Sex: Male

DRUGS (9)
  1. NEURONTIN [Suspect]
     Indication: PAIN
     Dosage: 300 MG, 3X/DAY
     Route: 048
     Dates: start: 20030101
  2. NEURONTIN [Suspect]
     Indication: PARKINSON'S DISEASE
  3. GABAPENTIN [Suspect]
     Indication: PAIN
     Dosage: 300 MG, 3X/DAY
     Route: 048
     Dates: start: 20040101
  4. GABAPENTIN [Suspect]
     Indication: PARKINSON'S DISEASE
  5. SINEMET [Concomitant]
     Indication: PARKINSON'S DISEASE
     Dosage: UNK
  6. ATENOLOL [Concomitant]
     Indication: HYPERTENSION
     Dosage: 25 MG, 1X/DAY
  7. LOPID [Concomitant]
     Indication: BLOOD TRIGLYCERIDES
     Dosage: 600 MG, 2X/DAY
  8. LOVASTATIN [Concomitant]
     Dosage: 40 MG, 1X/DAY
  9. MULTI-VITAMINS [Concomitant]
     Dosage: UNK

REACTIONS (4)
  - ANXIETY [None]
  - COMPLETED SUICIDE [None]
  - DRUG INEFFECTIVE FOR UNAPPROVED INDICATION [None]
  - SUICIDAL IDEATION [None]
